FAERS Safety Report 21229846 (Version 2)
Quarter: 2022Q3

REPORT INFORMATION
  Report Type: Spontaneous
  Country: ES (occurrence: ES)
  Receive Date: 20220818
  Receipt Date: 20220902
  Transmission Date: 20221027
  Serious: Yes (Other)
  Sender: FDA-Public Use
  Company Number: ES-TEVA-2022-ES-2064431

PATIENT
  Sex: Female

DRUGS (5)
  1. LOPERAMIDE [Suspect]
     Active Substance: LOPERAMIDE
     Indication: Diarrhoea neonatal
     Route: 065
  2. TACROLIMUS [Suspect]
     Active Substance: TACROLIMUS
     Indication: Immunosuppressant drug therapy
     Route: 065
  3. INSULIN NOS [Suspect]
     Active Substance: INSULIN NOS
     Indication: Neonatal diabetes mellitus
     Route: 048
  4. BASILIXIMAB [Concomitant]
     Active Substance: BASILIXIMAB
     Indication: Immunosuppressant drug therapy
     Dosage: INDUCTION THERAPY
     Route: 065
  5. METHYLPREDNISOLONE [Concomitant]
     Active Substance: METHYLPREDNISOLONE
     Indication: Immunosuppressant drug therapy
     Route: 065

REACTIONS (6)
  - Renal failure [Recovered/Resolved]
  - Hypertension [Unknown]
  - Toxicity to various agents [Unknown]
  - Bacteraemia [Unknown]
  - Device related sepsis [Unknown]
  - Drug ineffective [Unknown]
